FAERS Safety Report 8591120 (Version 2)
Quarter: 2012Q4

REPORT INFORMATION
  Report Type: 
  Country: US (occurrence: US)
  Receive Date: 20120601
  Receipt Date: 20121206
  Transmission Date: 20130627
  Serious: Yes (Other)
  Sender: FDA-Public Use
  Company Number: US-JNJFOC-20120518419

PATIENT
  Sex: Female
  Weight: 56.25 kg

DRUGS (4)
  1. REMICADE [Suspect]
     Indication: FIBROMYALGIA
     Route: 042
     Dates: start: 2011, end: 2012
  2. REMICADE [Suspect]
     Indication: RHEUMATOID ARTHRITIS
     Route: 042
     Dates: start: 2011, end: 2012
  3. LYRICA [Concomitant]
     Indication: FIBROMYALGIA
     Route: 048
     Dates: start: 2008
  4. LORTAB [Concomitant]
     Indication: PAIN
     Route: 048
     Dates: start: 2008

REACTIONS (3)
  - Basal cell carcinoma [Recovered/Resolved]
  - Pain in extremity [Not Recovered/Not Resolved]
  - Neck pain [Not Recovered/Not Resolved]
